FAERS Safety Report 4303354-X (Version None)
Quarter: 2004Q1

REPORT INFORMATION
  Report Type: 
  Country: None (occurrence: None)
  Receive Date: 20040223
  Receipt Date: 20040209
  Transmission Date: 20041129
  Serious: Yes (Hospitalization)
  Sender: FDA-Public Use
  Company Number: 04P-151-0250130-00

PATIENT
  Age: 74 Year
  Sex: Male
  Weight: 74 kg

DRUGS (12)
  1. TRICOR [Suspect]
     Indication: HYPERCHOLESTEROLAEMIA
     Dosage: 200 MG, 1 IN 1 D, PER ORAL, YEARS
     Route: 048
     Dates: end: 20040108
  2. DOCETAXEL [Suspect]
     Indication: HYPOPHARYNGEAL CANCER
     Dosage: 40 MG
     Dates: start: 20031229, end: 20031229
  3. DOCETAXEL [Suspect]
     Indication: SQUAMOUS CELL CARCINOMA
     Dosage: 40 MG
     Dates: start: 20031229, end: 20031229
  4. CISPLATIN [Suspect]
     Indication: HYPOPHARYNGEAL CANCER
     Dosage: 0.5 MG
     Dates: start: 20031229, end: 20031229
  5. CISPLATIN [Suspect]
     Indication: SQUAMOUS CELL CARCINOMA
     Dosage: 0.5 MG
     Dates: start: 20031229, end: 20031229
  6. ENALAPRIL MALEATE [Concomitant]
  7. LEVOTHYROXINE SODIUM [Concomitant]
  8. ACENOCOUMAROL [Concomitant]
  9. LORAZEPAM [Concomitant]
  10. ZOLPIDEM TARTRATE [Concomitant]
  11. MIANSERIN HYDROCHLORIDE [Concomitant]
  12. BUPROPION HYDROCHLORIDE [Concomitant]

REACTIONS (6)
  - DRUG INTERACTION [None]
  - HEPATIC FAILURE [None]
  - HYPOPHARYNGEAL CANCER [None]
  - PROTHROMBIN TIME PROLONGED [None]
  - RENAL FAILURE [None]
  - SQUAMOUS CELL CARCINOMA [None]
